FAERS Safety Report 10244565 (Version 1)
Quarter: 2014Q2

REPORT INFORMATION
  Report Type: Spontaneous
  Country: US (occurrence: None)
  Receive Date: 20140617
  Receipt Date: 20140617
  Transmission Date: 20141212
  Serious: No
  Sender: FDA-Public Use
  Company Number: 2013CT000008

PATIENT
  Age: 49 Year
  Sex: Female
  Weight: 52.16 kg

DRUGS (5)
  1. KORLYM (MIFEPRISTONE) [Suspect]
     Indication: CUSHING^S SYNDROME
     Route: 048
     Dates: start: 20130117
  2. SYNTHROID [Concomitant]
  3. VITAMIN D [Concomitant]
  4. BACTRIM [Concomitant]
  5. CALCIUM [Concomitant]

REACTIONS (2)
  - Oedema peripheral [None]
  - Skin discolouration [None]
